FAERS Safety Report 8097924-3 (Version None)
Quarter: 2012Q1

REPORT INFORMATION
  Report Type: 
  Country: None (occurrence: None)
  Receive Date: 20120128
  Receipt Date: 20110721
  Transmission Date: 20120608
  Serious: No
  Sender: FDA-Public Use
  Company Number: US-ABBOTT-11P-163-0840891-00

PATIENT
  Sex: Male

DRUGS (5)
  1. HUMIRA [Suspect]
     Dosage: DAY 15
  2. HUMIRA [Suspect]
     Dosage: DAY 29
  3. HUMIRA [Suspect]
     Indication: CROHN'S DISEASE
     Dosage: DAY 1
     Dates: start: 20110705, end: 20110705
  4. PREDNISONE TAB [Concomitant]
     Indication: PRODUCT USED FOR UNKNOWN INDICATION
  5. LIALDA [Concomitant]
     Indication: PRODUCT USED FOR UNKNOWN INDICATION

REACTIONS (1)
  - FREQUENT BOWEL MOVEMENTS [None]
